FAERS Safety Report 6141393-7 (Version None)
Quarter: 2009Q2

REPORT INFORMATION
  Report Type: 
  Country: None (occurrence: None)
  Receive Date: 20090402
  Receipt Date: 20090324
  Transmission Date: 20091009
  Serious: No
  Sender: FDA-Public Use
  Company Number: US-ROCHE-622539

PATIENT
  Sex: Female
  Weight: 83.9 kg

DRUGS (2)
  1. XELODA [Suspect]
     Indication: GASTROINTESTINAL CARCINOMA
     Route: 048
     Dates: start: 20080718
  2. GEMZAR [Concomitant]

REACTIONS (1)
  - DRUG INEFFECTIVE [None]
